FAERS Safety Report 8999367 (Version 1)
Quarter: 2013Q1

REPORT INFORMATION
  Report Type: Spontaneous
  Country: IT (occurrence: IT)
  Receive Date: 20130103
  Receipt Date: 20130103
  Transmission Date: 20140127
  Serious: Yes (Other)
  Sender: FDA-Public Use
  Company Number: IT-JNJFOC-20121212586

PATIENT
  Age: 61 Year
  Sex: Female

DRUGS (5)
  1. INVEGA [Suspect]
     Indication: PRODUCT USED FOR UNKNOWN INDICATION
     Dosage: 28 TABLETS
     Route: 048
     Dates: start: 20121221, end: 20121221
  2. LORAZEPAM [Suspect]
     Indication: PRODUCT USED FOR UNKNOWN INDICATION
     Route: 048
     Dates: start: 20121221, end: 20121221
  3. CARBOLITHIUM [Suspect]
     Indication: PRODUCT USED FOR UNKNOWN INDICATION
     Dosage: 50 CAPSULES
     Route: 048
     Dates: start: 20121221, end: 20121221
  4. EFFEXOR [Suspect]
     Indication: PRODUCT USED FOR UNKNOWN INDICATION
     Route: 048
     Dates: start: 20121221, end: 20121221
  5. ANTRA [Suspect]
     Indication: PRODUCT USED FOR UNKNOWN INDICATION
     Route: 048
     Dates: start: 20121221, end: 20121221

REACTIONS (3)
  - Self injurious behaviour [Unknown]
  - Overdose [Unknown]
  - Sopor [Unknown]
